FAERS Safety Report 5725730-0 (Version None)
Quarter: 2008Q2

REPORT INFORMATION
  Report Type: 
  Country: None (occurrence: None)
  Receive Date: 20080501
  Receipt Date: 20080418
  Transmission Date: 20081010
  Serious: Yes (Hospitalization)
  Sender: FDA-Public Use
  Company Number: JP-GENENTECH-260086

PATIENT
  Sex: Female

DRUGS (5)
  1. AVASTIN [Suspect]
     Indication: COLON CANCER
     Dosage: 5 MG/KG, Q2W
     Route: 041
     Dates: start: 20080123
  2. IRINOTECAN HYDROCHLORIDE [Suspect]
     Indication: COLON CANCER
     Route: 041
  3. FLUOROURACIL [Suspect]
     Indication: COLON CANCER
     Route: 042
  4. ISOVORIN [Suspect]
     Indication: COLON CANCER
     Route: 041
  5. RINDERON [Suspect]
     Indication: COLON CANCER

REACTIONS (3)
  - CONSTIPATION [None]
  - PERIPHERAL NERVE LESION [None]
  - URINE OUTPUT DECREASED [None]
